FAERS Safety Report 4853311-X (Version None)
Quarter: 2005Q4

REPORT INFORMATION
  Report Type: 
  Country: None (occurrence: None)
  Receive Date: 20051214
  Receipt Date: 20051018
  Transmission Date: 20060501
  Serious: Yes (Hospitalization)
  Sender: FDA-Public Use
  Company Number: JP-JPN-A20052494

PATIENT
  Age: 39 Year
  Sex: Female
  Weight: 60 kg

DRUGS (8)
  1. PAXIL [Suspect]
     Indication: DEPRESSION
     Dosage: 40MG PER DAY
     Route: 048
     Dates: start: 20020118, end: 20030725
  2. AMOXAPINE [Suspect]
     Indication: DEPRESSION
     Dosage: 75MG PER DAY
     Route: 048
     Dates: start: 20020607, end: 20050101
  3. SULPIRIDE [Suspect]
     Route: 048
  4. FLUVOXAMINE MALEATE [Suspect]
     Route: 048
  5. LITHIUM CARBONATE [Concomitant]
     Indication: BIPOLAR I DISORDER
     Route: 048
     Dates: start: 20010427, end: 20030829
  6. THYROXINE SODIUM [Concomitant]
     Indication: HYPOTHYROIDISM
     Route: 048
     Dates: start: 20020510, end: 20030905
  7. ETIZOLAM [Concomitant]
     Indication: NEUROSIS
     Route: 048
     Dates: start: 20020308, end: 20031010
  8. NITRAZEPAM [Concomitant]
     Indication: INSOMNIA
     Dosage: 5MG PER DAY
     Route: 048
     Dates: start: 20000728, end: 20040116

REACTIONS (12)
  - ACTIVITIES OF DAILY LIVING IMPAIRED [None]
  - AKATHISIA [None]
  - ANXIETY [None]
  - DRUG WITHDRAWAL SYNDROME [None]
  - FEAR [None]
  - INSOMNIA [None]
  - IRRITABILITY [None]
  - OBSESSIVE THOUGHTS [None]
  - PORIOMANIA [None]
  - RESTLESS LEGS SYNDROME [None]
  - SCREAMING [None]
  - SUICIDAL IDEATION [None]
